FAERS Safety Report 11202433 (Version 2)
Quarter: 2015Q3

REPORT INFORMATION
  Report Type: Report from Study
  Country: JP (occurrence: JP)
  Receive Date: 20150619
  Receipt Date: 20150702
  Transmission Date: 20151125
  Serious: Yes (Death)
  Sender: FDA-Public Use
  Company Number: JP-MERCK-1504JPN002092

PATIENT
  Age: 54 Year
  Sex: Male
  Weight: 70.2 kg

DRUGS (6)
  1. PEMBROLIZUMAB. [Suspect]
     Active Substance: PEMBROLIZUMAB
     Indication: MALIGNANT MELANOMA
     Dosage: 2 MG/KG, Q3W
     Route: 042
     Dates: start: 20141203, end: 20150304
  2. DIAMOX SEQUELS [Concomitant]
     Active Substance: ACETAZOLAMIDE
     Indication: VISUAL IMPAIRMENT
     Dosage: 250 MG, QD
     Route: 048
     Dates: start: 201410
  3. PEMBROLIZUMAB. [Suspect]
     Active Substance: PEMBROLIZUMAB
     Dosage: 2 MG/KG, Q3W
     Route: 042
     Dates: start: 20150325, end: 20150325
  4. AIPHAGAN [Concomitant]
     Active Substance: BRIMONIDINE TARTRATE
     Indication: VISUAL IMPAIRMENT
     Dosage: 1 GTT DAILY, PRN
     Route: 047
     Dates: start: 201410
  5. ASPARA POTASSIUM [Concomitant]
     Active Substance: POTASSIUM ASPARTATE
     Indication: VISUAL IMPAIRMENT
     Dosage: 300 MG, QD
     Route: 048
     Dates: start: 201410
  6. XALATAN [Concomitant]
     Active Substance: LATANOPROST
     Indication: VISUAL IMPAIRMENT
     Dosage: 1 GTT DAILY, PRN
     Route: 047
     Dates: start: 201410

REACTIONS (1)
  - Brain contusion [Fatal]

NARRATIVE: CASE EVENT DATE: 20150331
